FAERS Safety Report 7730535-5 (Version None)
Quarter: 2011Q3

REPORT INFORMATION
  Report Type: 
  Country: None (occurrence: None)
  Receive Date: 20110901
  Receipt Date: 20110901
  Transmission Date: 20111222
  Serious: Yes (Life-Threatening)
  Sender: FDA-Public Use
  Company Number: None

PATIENT
  Age: 79 Year
  Sex: Male
  Weight: 66.2252 kg

DRUGS (1)
  1. PRAVACHOL [Suspect]
     Indication: BLOOD CHOLESTEROL INCREASED
     Dosage: 40 MG TAB DAILY ORAL
     Route: 048
     Dates: start: 20110413, end: 20110718

REACTIONS (7)
  - CHROMATURIA [None]
  - TENDON PAIN [None]
  - PYREXIA [None]
  - GAIT DISTURBANCE [None]
  - MUSCULOSKELETAL PAIN [None]
  - DYSPNOEA [None]
  - OROPHARYNGEAL PAIN [None]
